FAERS Safety Report 10173915 (Version 3)
Quarter: 2014Q4

REPORT INFORMATION
  Report Type: Report from Study
  Country: US (occurrence: US)
  Receive Date: 20140515
  Receipt Date: 20141002
  Transmission Date: 20150528
  Serious: Yes (Other)
  Sender: FDA-Public Use
  Company Number: US-GILEAD-2014-0102326

PATIENT
  Age: 52 Year
  Sex: Male
  Weight: 85 kg

DRUGS (2)
  1. SOFOSBUVIR [Suspect]
     Active Substance: SOFOSBUVIR
     Indication: CHRONIC HEPATITIS C
     Dosage: 400 MG, QD
     Route: 048
     Dates: start: 20140221, end: 20140808
  2. RIBASPHERE [Concomitant]
     Active Substance: RIBAVIRIN
     Indication: HEPATITIS C
     Dosage: 1000 MG, UNK
     Route: 048
     Dates: start: 20140221, end: 20140808

REACTIONS (14)
  - Dysgeusia [Unknown]
  - Abdominal pain upper [Unknown]
  - Painful respiration [Unknown]
  - Memory impairment [Unknown]
  - Nausea [Unknown]
  - Lymphadenopathy [Unknown]
  - Night sweats [Unknown]
  - Headache [Unknown]
  - Fatigue [Unknown]
  - Haemorrhagic diathesis [Unknown]
  - Angina pectoris [Unknown]
  - Sialoadenitis [Unknown]
  - Abdominal distension [Unknown]
  - Pruritus [Unknown]

NARRATIVE: CASE EVENT DATE: 20140315
